FAERS Safety Report 5261930-4 (Version None)
Quarter: 2007Q1

REPORT INFORMATION
  Report Type: 
  Country: None (occurrence: None)
  Receive Date: 20070308
  Receipt Date: 20070222
  Transmission Date: 20070707
  Serious: Yes (Death)
  Sender: FDA-Public Use
  Company Number: ALK_0126_2007

PATIENT
  Age: 52 Year
  Sex: Male

DRUGS (9)
  1. VIVITROL [Suspect]
     Indication: DRUG USE FOR UNKNOWN INDICATION
     Dosage: DF
     Dates: start: 20060801, end: 20070101
  2. WELLBUTRIN [Concomitant]
  3. CRESTOR [Concomitant]
  4. ALTACE [Concomitant]
  5. FOLIC ACID [Concomitant]
  6. ADVAIR DISKUS 100/50 [Concomitant]
  7. BACLOFEN [Concomitant]
  8. ZOFRAN [Concomitant]
  9. CHEMOTHERAPY (NOS) [Concomitant]

REACTIONS (2)
  - INFECTION IN AN IMMUNOCOMPROMISED HOST [None]
  - SEPSIS [None]
